FAERS Safety Report 24112695 (Version 2)
Quarter: 2024Q3

REPORT INFORMATION
  Report Type: Report from Study
  Country: US (occurrence: US)
  Receive Date: 20240719
  Receipt Date: 20240823
  Transmission Date: 20241017
  Serious: No
  Sender: DR REDDYS
  Company Number: US-drreddys-CLI/USA/23/0161672

PATIENT
  Age: 25 Year
  Sex: Female

DRUGS (2)
  1. ZENATANE [Suspect]
     Active Substance: ISOTRETINOIN
     Indication: Product used for unknown indication
     Dosage: RMA ISSUE DATE: 17 AUGUST 2022, 01:06:43 PM, 14 SEPTEMBER 2022,03:29:53 PM, 22 OCTOBER 2022, 02:18:1
     Route: 048
     Dates: start: 20220817, end: 202301
  2. ZENATANE [Suspect]
     Active Substance: ISOTRETINOIN

REACTIONS (3)
  - Product dose omission issue [Unknown]
  - Treatment noncompliance [Unknown]
  - Pregnancy test false positive [Unknown]
